FAERS Safety Report 4346038-4 (Version None)
Quarter: 2004Q2

REPORT INFORMATION
  Report Type: 
  Country: None (occurrence: None)
  Receive Date: 20040426
  Receipt Date: 20040419
  Transmission Date: 20050107
  Serious: Yes (Hospitalization)
  Sender: FDA-Public Use
  Company Number: US-BRISTOL-MYERS SQUIBB COMPANY-12568457

PATIENT
  Age: 46 Year
  Sex: Female
  Weight: 85 kg

DRUGS (12)
  1. GATIFLOXACIN IV [Suspect]
     Indication: INFECTED CYST
     Route: 042
  2. METRONIDAZOLE [Concomitant]
     Indication: INFECTED CYST
     Route: 042
  3. PREDNISONE [Concomitant]
  4. MYCOPHENOLATE MOFETIL [Concomitant]
  5. OMEPRAZOLE [Concomitant]
  6. ATORVASTATIN [Concomitant]
  7. FENOFIBRATE [Concomitant]
  8. CLONIDINE [Concomitant]
     Route: 062
  9. LABETALOL HCL [Concomitant]
  10. LOTREL [Concomitant]
     Dosage: DOSAGE FORM = AMLODIPINE 5 MG PLUS BENAZEPRIL 10 MG DAILY
  11. NEPHRO-VITE [Concomitant]
  12. FOLIC ACID [Concomitant]

REACTIONS (1)
  - HYPERGLYCAEMIA [None]
